FAERS Safety Report 14071666 (Version 1)
Quarter: 2017Q4

REPORT INFORMATION
  Report Type: Spontaneous
  Country: US (occurrence: US)
  Receive Date: 20171011
  Receipt Date: 20171011
  Transmission Date: 20180321
  Serious: No
  Sender: FDA-Public Use
  Company Number: US-ASTRAZENECA-2017SE49236

PATIENT
  Sex: Female

DRUGS (1)
  1. ZOMIG [Suspect]
     Active Substance: ZOLMITRIPTAN
     Dosage: 1 SPRAY IN ONE NOSTRIL AT HEADACHE ONSET. MAY REPEAT IN 3 TO 4 HOURS. MAXIMUM DOSE 10MG PER DAY
     Route: 045
     Dates: start: 200807

REACTIONS (1)
  - Nasopharyngitis [Unknown]
